FAERS Safety Report 5858996-7 (Version None)
Quarter: 2008Q3

REPORT INFORMATION
  Report Type: 
  Country: None (occurrence: None)
  Receive Date: 20080825
  Receipt Date: 20070807
  Transmission Date: 20090109
  Serious: Yes (Other)
  Sender: FDA-Public Use
  Company Number: PAR_01680_2007

PATIENT

DRUGS (1)
  1. MEGESTROL ACETATE [Suspect]
     Indication: DRUG USE FOR UNKNOWN INDICATION
     Dosage: DF ORAL
     Route: 048

REACTIONS (1)
  - THROMBOSIS [None]
